FAERS Safety Report 19515831 (Version 6)
Quarter: 2022Q2

REPORT INFORMATION
  Report Type: Report from Study
  Country: CA (occurrence: CA)
  Receive Date: 20210710
  Receipt Date: 20220616
  Transmission Date: 20220721
  Serious: Yes (Other)
  Sender: FDA-Public Use
  Company Number: NVSC2020CA180353

PATIENT
  Age: 73 Year
  Sex: Female

DRUGS (3)
  1. SANDOSTATIN LAR DEPOT [Suspect]
     Active Substance: OCTREOTIDE ACETATE
     Indication: Carcinoid tumour
     Dosage: 30 MG, 4 WEEKS
     Route: 030
     Dates: start: 20200522
  2. SANDOSTATIN LAR DEPOT [Suspect]
     Active Substance: OCTREOTIDE ACETATE
  3. SANDOSTATIN LAR DEPOT [Suspect]
     Active Substance: OCTREOTIDE ACETATE

REACTIONS (11)
  - Thrombosis [Recovering/Resolving]
  - Malignant melanoma [Unknown]
  - Second primary malignancy [Unknown]
  - Haemorrhage [Unknown]
  - Parosmia [Unknown]
  - Acne [Unknown]
  - Cystitis [Unknown]
  - Blood pressure increased [Unknown]
  - Alopecia [Unknown]
  - Nausea [Recovering/Resolving]
  - Injection site pain [Recovered/Resolved]

NARRATIVE: CASE EVENT DATE: 20200622
